FAERS Safety Report 7238185-4 (Version None)
Quarter: 2011Q1

REPORT INFORMATION
  Report Type: 
  Country: None (occurrence: None)
  Receive Date: 20110121
  Receipt Date: 20110118
  Transmission Date: 20110831
  Serious: No
  Sender: FDA-Public Use
  Company Number: US-PFIZER INC-2010132170

PATIENT
  Sex: Female
  Weight: 71.655 kg

DRUGS (15)
  1. INSULIN [Concomitant]
     Indication: DIABETES MELLITUS
     Dosage: UNK
  2. LASIX [Concomitant]
     Indication: RENAL TRANSPLANT
     Dosage: UNK, 2X/DAY, 80 MG IN THE MORNING AND 40 MG IN THE EVENING
     Route: 048
  3. WARFARIN [Concomitant]
     Indication: COAGULOPATHY
     Dosage: 6 MG, 1X/DAY
  4. ALENDRONATE SODIUM [Concomitant]
     Indication: BONE DISORDER
     Dosage: 35 MG, WEEKLY
  5. GABAPENTIN [Suspect]
     Dosage: 300 MG, 1X/DAY
     Route: 048
  6. NEORAL [Concomitant]
     Indication: IMMUNOSUPPRESSANT DRUG THERAPY
     Dosage: 150 MG, 2X/DAY
     Route: 048
  7. LEVOXYL [Concomitant]
     Indication: THYROID DISORDER
     Dosage: 137 UG, 1X/DAY
     Route: 048
  8. MYFORTIC [Concomitant]
     Indication: IMMUNOSUPPRESSANT DRUG THERAPY
     Dosage: 540 MG, 2X/DAY
     Route: 048
  9. FEXOFENADINE HYDROCHLORIDE [Concomitant]
     Indication: SEASONAL ALLERGY
     Dosage: 60 MG, 1X/DAY
  10. FISH OIL [Concomitant]
     Dosage: 4000 IU, 2X/DAY
  11. LIOTHYRONINE SODIUM [Concomitant]
     Indication: THYROID DISORDER
     Dosage: 10 UG, 1X/DAY
  12. GABAPENTIN [Suspect]
     Indication: NEUROPATHY PERIPHERAL
     Dosage: 300 MG, 2X/DAY
     Route: 048
  13. BACTRIM [Concomitant]
     Indication: INFECTION PROPHYLAXIS
     Dosage: UNK, DAILY
  14. LEXAPRO [Concomitant]
     Indication: DEPRESSION
     Dosage: 20 MG, 1X/DAY
     Route: 048
  15. ALDACTONE [Concomitant]
     Indication: RENAL TRANSPLANT
     Dosage: 50 MG, 2X/DAY
     Route: 048

REACTIONS (2)
  - DRUG DOSE OMISSION [None]
  - PRURITUS [None]
